FAERS Safety Report 19822862 (Version 1)
Quarter: 2021Q3

REPORT INFORMATION
  Report Type: Spontaneous
  Country: US (occurrence: US)
  Receive Date: 20210913
  Receipt Date: 20210913
  Transmission Date: 20211014
  Serious: No
  Sender: FDA-Public Use
  Company Number: US-OCULAR THERAPEUTIX-2021OCX00035

PATIENT
  Sex: Male
  Weight: 86 kg

DRUGS (23)
  1. COREG [Concomitant]
     Active Substance: CARVEDILOL
  2. CYMBALTA [Concomitant]
     Active Substance: DULOXETINE HYDROCHLORIDE
     Dosage: 60 MG, 2X/DAY
  3. LANTUS [Concomitant]
     Active Substance: INSULIN GLARGINE
  4. PRILOSEC [Concomitant]
     Active Substance: OMEPRAZOLE MAGNESIUM
  5. REQUIP [Concomitant]
     Active Substance: ROPINIROLE HYDROCHLORIDE
  6. DRISDOL [Concomitant]
     Active Substance: ERGOCALCIFEROL
  7. COZAAR [Concomitant]
     Active Substance: LOSARTAN POTASSIUM
  8. VIGAMOX [Concomitant]
     Active Substance: MOXIFLOXACIN HYDROCHLORIDE
     Dosage: 1 DROP, 4X/DAY X 2W OR UNTIL GONE FOLLOWING SURGERY
     Dates: start: 20210621
  9. KETOROLAC [Concomitant]
     Active Substance: KETOROLAC TROMETHAMINE
     Dosage: 1 DROP, 4X/DAY FOR 2 W OR UNTIL GONE FOLLOWING SURGERY
     Dates: start: 20210621
  10. HUMALOG [Concomitant]
     Active Substance: INSULIN LISPRO
  11. DEXTENZA [Suspect]
     Active Substance: DEXAMETHASONE
     Indication: EYE OPERATION
     Dosage: UNK, THROUGH RIGHT PUNCTUM
     Route: 047
     Dates: start: 20210621
  12. COLACE [Concomitant]
     Active Substance: DOCUSATE SODIUM
  13. IMDUR [Concomitant]
     Active Substance: ISOSORBIDE MONONITRATE
  14. FLOMAX [Concomitant]
     Active Substance: TAMSULOSIN HYDROCHLORIDE
  15. AMBIEN [Concomitant]
     Active Substance: ZOLPIDEM TARTRATE
  16. CYANOCOBALAMIN. [Concomitant]
     Active Substance: CYANOCOBALAMIN
     Dosage: UNK, 1X/MONTH
  17. GLUCOPHAGE [Concomitant]
     Active Substance: METFORMIN HYDROCHLORIDE
  18. CARAFATE [Concomitant]
     Active Substance: SUCRALFATE
  19. ZETIA [Concomitant]
     Active Substance: EZETIMIBE
  20. MULTIVIT [Concomitant]
     Active Substance: VITAMINS
  21. DEXTENZA [Suspect]
     Active Substance: DEXAMETHASONE
     Dosage: UNK, THROUGH LEFT PUNCTUM
     Route: 047
     Dates: start: 20210628
  22. ASA [Concomitant]
     Active Substance: ASPIRIN
  23. DOXYCYCLINE. [Concomitant]
     Active Substance: DOXYCYCLINE

REACTIONS (3)
  - Anterior chamber cell [Recovered/Resolved]
  - Vision blurred [Recovering/Resolving]
  - Iritis [Recovering/Resolving]

NARRATIVE: CASE EVENT DATE: 2021
